FAERS Safety Report 8006134-7 (Version None)
Quarter: 2011Q4

REPORT INFORMATION
  Report Type: 
  Country: None (occurrence: None)
  Receive Date: 20111226
  Receipt Date: 20111213
  Transmission Date: 20120403
  Serious: Yes (Life-Threatening)
  Sender: FDA-Public Use
  Company Number: DK-ELI_LILLY_AND_COMPANY-DK201112004786

PATIENT
  Sex: Female

DRUGS (1)
  1. ZYPREXA [Suspect]
     Dosage: UNK
     Dates: start: 20110901

REACTIONS (1)
  - PNEUMONIA [None]
